FAERS Safety Report 8172169-7 (Version None)
Quarter: 2012Q1

REPORT INFORMATION
  Report Type: 
  Country: None (occurrence: None)
  Receive Date: 20120228
  Receipt Date: 20120222
  Transmission Date: 20120608
  Serious: Yes (Other)
  Sender: FDA-Public Use
  Company Number: MA-ABBOTT-12P-110-0905687-00

PATIENT
  Sex: Male

DRUGS (1)
  1. VALPROIC ACID [Suspect]
     Indication: PROPHYLAXIS
     Dates: start: 20110801, end: 20111201

REACTIONS (2)
  - CONVULSION [None]
  - MEDICATION RESIDUE [None]
